FAERS Safety Report 5558156-3 (Version None)
Quarter: 2007Q4

REPORT INFORMATION
  Report Type: 
  Country: None (occurrence: None)
  Receive Date: 20071214
  Receipt Date: 20071204
  Transmission Date: 20080405
  Serious: Yes (Other)
  Sender: FDA-Public Use
  Company Number: US-PFIZER INC-2005146120

PATIENT
  Sex: Female
  Weight: 64 kg

DRUGS (5)
  1. NEURONTIN [Suspect]
     Indication: NEUROPATHY
     Route: 065
  2. LYRICA [Suspect]
     Indication: NEURALGIA
  3. ALL OTHER THERAPEUTIC PRODUCTS [Suspect]
     Indication: NEURALGIA
     Dosage: FREQ:UNKNOWN
     Route: 065
  4. TRAZODONE HCL [Concomitant]
     Dosage: FREQ:UNKNOWN
     Route: 065
  5. LORAZEPAM [Concomitant]
     Dosage: FREQ:UNKNOWN
     Route: 065

REACTIONS (10)
  - DEPRESSION [None]
  - DRUG INEFFECTIVE [None]
  - GASTROOESOPHAGEAL REFLUX DISEASE [None]
  - HELICOBACTER INFECTION [None]
  - INCREASED APPETITE [None]
  - NAUSEA [None]
  - NEUROPATHY [None]
  - PAIN [None]
  - PARAESTHESIA [None]
  - WEIGHT INCREASED [None]
